FAERS Safety Report 12084783 (Version 9)
Quarter: 2017Q2

REPORT INFORMATION
  Report Type: Report from Study
  Country: CA (occurrence: CA)
  Receive Date: 20160217
  Receipt Date: 20170519
  Transmission Date: 20170829
  Serious: Yes (Death, Hospitalization, Other)
  Sender: FDA-Public Use
  Company Number: CA-B.I. PHARMACEUTICALS,INC./RIDGEFIELD-2015-BI-50729CN

PATIENT
  Sex: Female

DRUGS (5)
  1. OFEV [Suspect]
     Active Substance: NINTEDANIB
     Route: 048
  2. OFEV [Suspect]
     Active Substance: NINTEDANIB
     Indication: IDIOPATHIC PULMONARY FIBROSIS
     Route: 048
     Dates: start: 201508
  3. OFEV [Suspect]
     Active Substance: NINTEDANIB
     Route: 048
     Dates: start: 20150912
  4. OFEV [Suspect]
     Active Substance: NINTEDANIB
     Route: 048
  5. OFEV [Suspect]
     Active Substance: NINTEDANIB
     Dosage: STRENGTH: 150MG; DOSE PER APPLICATION: 100MG IN EVENING AND 150MG IN MORNING
     Route: 048

REACTIONS (8)
  - Alanine aminotransferase increased [Unknown]
  - Abdominal pain upper [Unknown]
  - Off label use [Unknown]
  - Diarrhoea [Unknown]
  - Dyspnoea [Not Recovered/Not Resolved]
  - Dyspnoea [Unknown]
  - Idiopathic pulmonary fibrosis [Fatal]
  - Drug-induced liver injury [Unknown]

NARRATIVE: CASE EVENT DATE: 2015
